FAERS Safety Report 5953295-7 (Version None)
Quarter: 2008Q4

REPORT INFORMATION
  Report Type: 
  Country: None (occurrence: None)
  Receive Date: 20081114
  Receipt Date: 20081107
  Transmission Date: 20090506
  Serious: Yes (Death, Hospitalization)
  Sender: FDA-Public Use
  Company Number: PHHY2008ZA27503

PATIENT
  Sex: Male
  Weight: 79 kg

DRUGS (2)
  1. TASIGNA [Suspect]
     Indication: BLAST CRISIS IN MYELOGENOUS LEUKAEMIA
     Dosage: 400 MG, BID
     Dates: start: 20080520, end: 20080816
  2. CHEMOTHERAPEUTICS NOS [Concomitant]
     Route: 042

REACTIONS (4)
  - BLAST CELL COUNT INCREASED [None]
  - DISEASE PROGRESSION [None]
  - NEUTROPENIA [None]
  - SEPSIS [None]
